FAERS Safety Report 9511048 (Version 1)
Quarter: 2013Q1

REPORT INFORMATION
  Report Type: Spontaneous
  Country: US (occurrence: None)
  Receive Date: 20130305
  Receipt Date: 20130305
  Transmission Date: 20140127
  Serious: Yes (Other)
  Sender: FDA-Public Use
  Company Number: 163-21880-11073239

PATIENT
  Age: 79 Year
  Sex: Female

DRUGS (6)
  1. METFORMIN (METFORMIN) (UNKNOWN) [Concomitant]
  2. GLYBURIDE (GLIBENCLAMIDE) (UNKNOWN) [Concomitant]
  3. REVLIMID [Suspect]
     Indication: PLASMA CELL MYELOMA
     Dosage: 10 MG, 1 IN 1 D, PO
     Route: 048
     Dates: start: 20110422, end: 20111018
  4. ALBUTEROL (SALBUTAMOL) (UNKNOWN) [Concomitant]
  5. FEXOFENADINE (FEXOFENADINE) (UNKNOWN) [Concomitant]
  6. CRESTOR (ROSUVASTATIN) (UNKNOWN) [Concomitant]

REACTIONS (2)
  - Blood creatine increased [None]
  - Neutropenia [None]
